FAERS Safety Report 5315742-3 (Version None)
Quarter: 2007Q1

REPORT INFORMATION
  Report Type: 
  Country: None (occurrence: None)
  Receive Date: 20070130
  Receipt Date: 20061026
  Transmission Date: 20070707
  Serious: Yes (Other)
  Sender: FDA-Public Use
  Company Number: 149259USA

PATIENT
  Age: 31 Year
  Sex: Female

DRUGS (5)
  1. COPAXONE [Suspect]
     Indication: PRIMARY PROGRESSIVE MULTIPLE SCLEROSIS
     Dosage: 20 MG (20 MG,1 IN 1 D),SUBCUTANEOUS
     Route: 058
     Dates: start: 20030101
  2. INTERFERON BETA-1A [Suspect]
     Indication: PRIMARY PROGRESSIVE MULTIPLE SCLEROSIS
     Dosage: SEE IMAGE
     Dates: start: 20060801, end: 20060901
  3. INTERFERON BETA-1A [Suspect]
     Indication: PRIMARY PROGRESSIVE MULTIPLE SCLEROSIS
     Dosage: SEE IMAGE
     Dates: start: 20060901, end: 20060928
  4. LEVETIRACETAM [Concomitant]
  5. AMLODIPINE [Concomitant]

REACTIONS (1)
  - CONVULSION [None]
